FAERS Safety Report 17207215 (Version 1)
Quarter: 2019Q4

REPORT INFORMATION
  Report Type: Spontaneous
  Country: US (occurrence: US)
  Receive Date: 20191227
  Receipt Date: 20191227
  Transmission Date: 20200122
  Serious: Yes (Death, Life-Threatening, Hospitalization, Other)
  Sender: FDA-Public Use
  Company Number: US-SCIEGEN PHARMACEUTICALS INC-2019SCILIT00388

PATIENT
  Age: 61 Year
  Sex: Female

DRUGS (8)
  1. VASOPRESSORS [Interacting]
     Active Substance: UNSPECIFIED INGREDIENT
  2. FLUOXETINE [Suspect]
     Active Substance: FLUOXETINE HYDROCHLORIDE
  3. CALCIUM [Interacting]
     Active Substance: CALCIUM
  4. METHYLENE BLUE. [Interacting]
     Active Substance: METHYLENE BLUE
  5. DILTIAZEM. [Suspect]
     Active Substance: DILTIAZEM
  6. OPIOIDS [Interacting]
     Active Substance: UNSPECIFIED INGREDIENT
  7. ATROPINE. [Interacting]
     Active Substance: ATROPINE
  8. SODIUM BICARBONATE. [Interacting]
     Active Substance: SODIUM BICARBONATE

REACTIONS (9)
  - Hypertension [Unknown]
  - Toxicity to various agents [Fatal]
  - Tachycardia [Unknown]
  - Seizure [Unknown]
  - Bradycardia [Unknown]
  - Coma [Unknown]
  - Metabolic acidosis [Unknown]
  - Hypotension [Unknown]
  - Depressed level of consciousness [Unknown]
